FAERS Safety Report 22368809 (Version 1)
Quarter: 2023Q2

REPORT INFORMATION
  Report Type: Spontaneous
  Country: US (occurrence: None)
  Receive Date: 20230525
  Receipt Date: 20230525
  Transmission Date: 20230721
  Serious: Yes (Other)
  Sender: FDA-Public Use
  Company Number: None

PATIENT
  Age: 32 Year
  Sex: Male
  Weight: 69 kg

DRUGS (1)
  1. MIRTAZAPINE [Suspect]
     Active Substance: MIRTAZAPINE
     Indication: Dyspepsia
     Dates: start: 20230320, end: 20230501

REACTIONS (7)
  - Nausea [None]
  - Abdominal pain upper [None]
  - Hyperacusis [None]
  - Panic attack [None]
  - Depression [None]
  - Abdominal pain [None]
  - Withdrawal syndrome [None]

NARRATIVE: CASE EVENT DATE: 20230501
